FAERS Safety Report 22033430 (Version 1)
Quarter: 2023Q1

REPORT INFORMATION
  Report Type: Spontaneous
  Country: US (occurrence: US)
  Receive Date: 20230224
  Receipt Date: 20230224
  Transmission Date: 20230418
  Serious: Yes (Other)
  Sender: FDA-Public Use
  Company Number: US-PFIZER INC-PV202300034871

PATIENT
  Age: 64 Year
  Sex: Female

DRUGS (1)
  1. TOFACITINIB CITRATE [Suspect]
     Active Substance: TOFACITINIB CITRATE
     Indication: Nephritis
     Dosage: 5 MG, DAILY
     Route: 048

REACTIONS (15)
  - Dyspnoea at rest [Unknown]
  - Dyspnoea exertional [Unknown]
  - Fatigue [Unknown]
  - Chills [Unknown]
  - Swelling face [Unknown]
  - Arthralgia [Unknown]
  - Pain in extremity [Unknown]
  - Back pain [Unknown]
  - Neck pain [Unknown]
  - Dizziness [Unknown]
  - Sleep disorder [Unknown]
  - Peripheral swelling [Unknown]
  - Swelling [Unknown]
  - Nodule [Unknown]
  - Off label use [Unknown]
